FAERS Safety Report 7728917-0 (Version None)
Quarter: 2011Q3

REPORT INFORMATION
  Report Type: 
  Country: None (occurrence: None)
  Receive Date: 20110906
  Receipt Date: 20110824
  Transmission Date: 20111222
  Serious: Yes (Hospitalization, Other)
  Sender: FDA-Public Use
  Company Number: US-UCBSA-038465

PATIENT
  Age: 51 Year
  Sex: Male
  Weight: 64 kg

DRUGS (5)
  1. LAMICTAL XR [Concomitant]
     Dosage: DAILY DOSE : 200 MG
     Dates: start: 20100907
  2. KEPPRA XR [Suspect]
     Indication: EPILEPSY
     Route: 048
     Dates: start: 20090412
  3. VIMPAT [Suspect]
     Indication: EPILEPSY
     Route: 048
     Dates: start: 20090705
  4. SABRIL [Concomitant]
     Indication: EPILEPSY
     Dosage: DAILY DOSE : 1000 MG
     Dates: start: 20110707
  5. LAMICTAL XR [Concomitant]
     Indication: EPILEPSY
     Dosage: DAILY DOSE : 400 MG
     Dates: start: 20100307, end: 20100101

REACTIONS (6)
  - PARANOIA [None]
  - NASAL DISCOMFORT [None]
  - BLINDNESS [None]
  - PRURITUS [None]
  - EPILEPSY [None]
  - PSYCHOTIC DISORDER [None]
